FAERS Safety Report 24711395 (Version 1)
Quarter: 2024Q4

REPORT INFORMATION
  Report Type: Spontaneous
  Country: US (occurrence: US)
  Receive Date: 20241209
  Receipt Date: 20241209
  Transmission Date: 20250114
  Serious: No
  Sender: ABBVIE
  Company Number: US-ABBVIE-6036558

PATIENT
  Age: 72 Year
  Sex: Female

DRUGS (1)
  1. ELAHERE [Suspect]
     Active Substance: MIRVETUXIMAB SORAVTANSINE-GYNX
     Indication: Ovarian cancer
     Dosage: DOSE: 6MG/KG?TWO INFUSION
     Route: 042
     Dates: start: 20241028

REACTIONS (4)
  - Eye irritation [Unknown]
  - Vision blurred [Unknown]
  - Eye pain [Recovered/Resolved]
  - Eye pain [Unknown]

NARRATIVE: CASE EVENT DATE: 20241107
